FAERS Safety Report 5445304-9 (Version None)
Quarter: 2007Q3

REPORT INFORMATION
  Report Type: 
  Country: None (occurrence: None)
  Receive Date: 20070906
  Receipt Date: 20070416
  Transmission Date: 20080115
  Serious: No
  Sender: FDA-Public Use
  Company Number: A0647879A

PATIENT
  Sex: Female

DRUGS (1)
  1. REQUIP [Suspect]
     Indication: RESTLESS LEGS SYNDROME
     Dosage: 1MG SEE DOSAGE TEXT
     Route: 048

REACTIONS (3)
  - DRUG INEFFECTIVE [None]
  - ILL-DEFINED DISORDER [None]
  - RESTLESS LEGS SYNDROME [None]
